FAERS Safety Report 19953906 (Version 1)
Quarter: 2021Q4

REPORT INFORMATION
  Report Type: Spontaneous
  Country: US (occurrence: US)
  Receive Date: 20211011
  Receipt Date: 20211011
  Transmission Date: 20220303
  Serious: Yes (Hospitalization)
  Sender: FDA-Public Use
  Company Number: None

PATIENT
  Age: 26 Month
  Sex: Female

DRUGS (5)
  1. VIGABATRIN [Suspect]
     Active Substance: VIGABATRIN
     Indication: Product used for unknown indication
     Dosage: 2 PKTS + 10ML WATER 15 ML -BID  VIA G-TUBE
     Dates: start: 20210205
  2. DAPTOMYCIN [Concomitant]
     Active Substance: DAPTOMYCIN
  3. MELATONIN [Concomitant]
     Active Substance: MELATONIN
  4. PROTONIX [Concomitant]
     Active Substance: PANTOPRAZOLE SODIUM
  5. TOPAMAX [Concomitant]
     Active Substance: TOPIRAMATE

REACTIONS (2)
  - Acceleromyography [None]
  - Cerebral disorder [None]

NARRATIVE: CASE EVENT DATE: 20211011
